FAERS Safety Report 5342504-3 (Version None)
Quarter: 2007Q2

REPORT INFORMATION
  Report Type: 
  Country: None (occurrence: None)
  Receive Date: 20070601
  Receipt Date: 20070524
  Transmission Date: 20071010
  Serious: Yes (Hospitalization)
  Sender: FDA-Public Use
  Company Number: SE-ABBOTT-07P-150-0365649-00

PATIENT
  Age: 47 Year
  Sex: Male

DRUGS (3)
  1. KALETRA [Suspect]
     Indication: HIV INFECTION
     Route: 048
     Dates: start: 20051001
  2. HERMOLEPSIN [Suspect]
     Indication: EPILEPSY
     Route: 048
     Dates: start: 20051001, end: 20070313
  3. LAMIVUDINE + ZIDOVUDINE [Suspect]
     Indication: HIV INFECTION
     Route: 048
     Dates: start: 20051001, end: 20070331

REACTIONS (2)
  - PANCYTOPENIA [None]
  - SEPSIS [None]
